FAERS Safety Report 9471147 (Version 1)
Quarter: 2013Q3

REPORT INFORMATION
  Report Type: Report from Study
  Country: US (occurrence: US)
  Receive Date: 20130822
  Receipt Date: 20130822
  Transmission Date: 20140515
  Serious: Yes (Hospitalization)
  Sender: FDA-Public Use
  Company Number: PHEH2013US017553

PATIENT
  Sex: Male

DRUGS (1)
  1. MYFORTIC [Suspect]
     Dosage: UNK UKN, BID
     Route: 048
     Dates: start: 20130612

REACTIONS (3)
  - Pericarditis [Unknown]
  - Ileus [Unknown]
  - Renal impairment [Unknown]
